FAERS Safety Report 6596550-2 (Version None)
Quarter: 2010Q1

REPORT INFORMATION
  Report Type: 
  Country: None (occurrence: None)
  Receive Date: 20100222
  Receipt Date: 20100222
  Transmission Date: 20100710
  Serious: No
  Sender: FDA-Public Use
  Company Number: None

PATIENT
  Sex: Female
  Weight: 74.1 kg

DRUGS (1)
  1. ROCEPHIN [Suspect]
     Indication: OSTEOMYELITIS
     Dosage: ROCEPHIN 2G DAILY IV
     Route: 042
     Dates: start: 20091224, end: 20091228

REACTIONS (3)
  - BLISTER [None]
  - ERYTHEMA [None]
  - LIP SWELLING [None]
